FAERS Safety Report 23928828 (Version 2)
Quarter: 2025Q3

REPORT INFORMATION
  Report Type: Spontaneous
  Country: US (occurrence: US)
  Receive Date: 20240531
  Receipt Date: 20250703
  Transmission Date: 20251020
  Serious: No
  Sender: RADIUS PHARM
  Company Number: US-RADIUS HEALTH INC.-2024US001758

PATIENT
  Sex: Female

DRUGS (2)
  1. TYMLOS [Suspect]
     Active Substance: ABALOPARATIDE
     Indication: Senile osteoporosis
     Route: 058
     Dates: start: 20231207
  2. CALCIUM CARBONATE\CHOLECALCIFEROL [Concomitant]
     Active Substance: CALCIUM CARBONATE\CHOLECALCIFEROL
     Indication: Product used for unknown indication

REACTIONS (9)
  - Bone pain [Unknown]
  - Fatigue [Unknown]
  - Headache [Unknown]
  - Arthralgia [Unknown]
  - Loss of personal independence in daily activities [Unknown]
  - Illness [Unknown]
  - Infection [Unknown]
  - Therapy interrupted [Unknown]
  - Intentional dose omission [Unknown]
